FAERS Safety Report 5709872-1 (Version None)
Quarter: 2008Q2

REPORT INFORMATION
  Report Type: 
  Country: None (occurrence: None)
  Receive Date: 20080418
  Receipt Date: 20070319
  Transmission Date: 20081010
  Serious: No
  Sender: FDA-Public Use
  Company Number: US-ASTRAZENECA-2007UW05342

PATIENT
  Age: 68 Year
  Sex: Female
  Weight: 61.2 kg

DRUGS (7)
  1. TOPROL-XL [Suspect]
     Indication: HYPERTENSION
     Route: 048
  2. TOPROL-XL [Suspect]
     Route: 048
  3. TOPROL-XL [Suspect]
     Route: 048
  4. THYROID TAB [Concomitant]
  5. NEXIUM [Concomitant]
  6. VALIUM [Concomitant]
  7. VITAMINS [Concomitant]

REACTIONS (3)
  - DIZZINESS [None]
  - DYSPNOEA [None]
  - EAR DISCOMFORT [None]
